FAERS Safety Report 20883960 (Version 2)
Quarter: 2022Q3

REPORT INFORMATION
  Report Type: Spontaneous
  Country: SI (occurrence: SI)
  Receive Date: 20220527
  Receipt Date: 20220708
  Transmission Date: 20221027
  Serious: Yes (Death, Other)
  Sender: FDA-Public Use
  Company Number: SI-BAYER-2022A071074

PATIENT
  Age: 52 Year
  Sex: Male

DRUGS (3)
  1. STIVARGA [Suspect]
     Active Substance: REGORAFENIB
     Indication: Rectal cancer
     Dosage: 80 MG, QD
     Dates: start: 201912
  2. STIVARGA [Suspect]
     Active Substance: REGORAFENIB
     Indication: Rectal cancer
     Dosage: 120 MG, QD
  3. STIVARGA [Suspect]
     Active Substance: REGORAFENIB
     Indication: Rectal cancer
     Dosage: 160 MG, QD

REACTIONS (5)
  - Metastases to lung [Fatal]
  - Metastases to central nervous system [Fatal]
  - C-reactive protein increased [Not Recovered/Not Resolved]
  - Weight decreased [Recovering/Resolving]
  - Off label use [None]

NARRATIVE: CASE EVENT DATE: 20191201
